FAERS Safety Report 25844828 (Version 2)
Quarter: 2025Q4

REPORT INFORMATION
  Report Type: Report from Study
  Country: JP (occurrence: JP)
  Receive Date: 20250925
  Receipt Date: 20251022
  Transmission Date: 20260118
  Serious: Yes (Other)
  Sender: ABBVIE
  Company Number: JP-TAKEDA-2025TJP009619

PATIENT
  Age: 59 Year
  Sex: Male
  Weight: 57.9 kg

DRUGS (3)
  1. LEUPROLIDE ACETATE [Suspect]
     Active Substance: LEUPROLIDE ACETATE
     Indication: Bulbospinal muscular atrophy congenital
     Dosage: 11.25 MILLIGRAM, Q3MONTHS
     Route: 058
     Dates: start: 20180126
  2. SHAKUYAKUKANZOTO [Concomitant]
     Active Substance: HERBALS
     Indication: Muscle spasms
     Dosage: 5 GRAM
     Route: 065
     Dates: start: 20180420
  3. LOXOPROFEN [Concomitant]
     Active Substance: LOXOPROFEN
     Indication: Tension headache
     Dosage: 60 MILLIGRAM
     Route: 065
     Dates: start: 20180713, end: 20181012

REACTIONS (1)
  - Diabetes mellitus [Not Recovered/Not Resolved]

NARRATIVE: CASE EVENT DATE: 20250710
